FAERS Safety Report 15486025 (Version 2)
Quarter: 2018Q4

REPORT INFORMATION
  Report Type: Report from Study
  Country: GB (occurrence: GB)
  Receive Date: 20181011
  Receipt Date: 20181011
  Transmission Date: 20190205
  Serious: Yes (Other)
  Sender: FDA-Public Use
  Company Number: GB-IPSEN BIOPHARMACEUTICALS, INC.-2018-15231

PATIENT
  Sex: Male

DRUGS (1)
  1. SOMATULINE AUTOGEL [Suspect]
     Active Substance: LANREOTIDE ACETATE
     Indication: ACROMEGALY
     Dosage: ONE 60 MG SYRINGE TOGETHER WITH ONE 120 MG SYRINGE TO MAKE A TOTAL DOSE OG 180 MG
     Dates: start: 20170711

REACTIONS (2)
  - Deafness [Unknown]
  - Prescribed overdose [Unknown]
